FAERS Safety Report 7499157-8 (Version None)
Quarter: 2011Q2

REPORT INFORMATION
  Report Type: 
  Country: None (occurrence: None)
  Receive Date: 20110516
  Receipt Date: 20110429
  Transmission Date: 20111010
  Serious: Yes (Hospitalization, Other)
  Sender: FDA-Public Use
  Company Number: 030968

PATIENT
  Sex: Female
  Weight: 59 kg

DRUGS (5)
  1. ALPRAZOLAM [Concomitant]
  2. NASONEX [Concomitant]
  3. TYLENOL (CAPLET) [Concomitant]
  4. CIMZIA [Suspect]
     Indication: CROHN'S DISEASE
     Dosage: (400 MG 1X/MONTH SUBCUTANEOUS)
     Route: 058
     Dates: start: 20100503
  5. PATANOL [Concomitant]

REACTIONS (3)
  - DIARRHOEA [None]
  - LARGE INTESTINE PERFORATION [None]
  - ABDOMINAL ABSCESS [None]
